FAERS Safety Report 21964454 (Version 1)
Quarter: 2023Q1

REPORT INFORMATION
  Report Type: Spontaneous
  Country: US (occurrence: None)
  Receive Date: 20230207
  Receipt Date: 20230207
  Transmission Date: 20230418
  Serious: Yes (Hospitalization)
  Sender: FDA-Public Use
  Company Number: None

PATIENT
  Age: 85 Year
  Sex: Male
  Weight: 83.46 kg

DRUGS (9)
  1. ABIRATERONE [Suspect]
     Active Substance: ABIRATERONE
     Indication: Prostate cancer
     Dosage: FREQUENCY : DAILY;?
     Route: 048
     Dates: start: 20221005
  2. ADVIL [Concomitant]
     Active Substance: IBUPROFEN
  3. CRESTOR [Concomitant]
     Active Substance: ROSUVASTATIN CALCIUM
  4. LEVOTHYROXINE [Concomitant]
     Active Substance: LEVOTHYROXINE
  5. PREDNISONE [Concomitant]
     Active Substance: PREDNISONE
  6. PROCHLORPERAZINE [Concomitant]
     Active Substance: PROCHLORPERAZINE
  7. VITAMIN D3 [Concomitant]
     Active Substance: CHOLECALCIFEROL
  8. WARFARIN [Concomitant]
     Active Substance: WARFARIN
  9. ZOFRAN [Concomitant]
     Active Substance: ONDANSETRON HYDROCHLORIDE

REACTIONS (3)
  - Renal disorder [None]
  - Liver disorder [None]
  - Muscle disorder [None]
